FAERS Safety Report 5066636-2 (Version None)
Quarter: 2006Q3

REPORT INFORMATION
  Report Type: 
  Country: None (occurrence: None)
  Receive Date: 20060801
  Receipt Date: 20060725
  Transmission Date: 20061208
  Serious: Yes (Hospitalization)
  Sender: FDA-Public Use
  Company Number: ZA-AVENTIS-200617869GDDC

PATIENT
  Age: 39 Year
  Sex: Female

DRUGS (6)
  1. LANTUS [Suspect]
     Indication: DIABETES MELLITUS
     Route: 058
  2. APIDRA [Suspect]
     Indication: DIABETES MELLITUS
     Route: 058
  3. GLUCOPHAGE [Concomitant]
     Indication: DIABETES MELLITUS
     Route: 048
  4. PHARMAPRESS [Concomitant]
     Indication: BLOOD PRESSURE
     Route: 048
  5. ELTROXIN [Concomitant]
     Route: 048
  6. NOVORAPID [Concomitant]
     Indication: DIABETES MELLITUS
     Route: 058

REACTIONS (3)
  - ECZEMA [None]
  - HYPERGLYCAEMIA [None]
  - PNEUMONIA [None]
